FAERS Safety Report 23287389 (Version 1)
Quarter: 2023Q4

REPORT INFORMATION
  Report Type: Spontaneous
  Country: ES (occurrence: ES)
  Receive Date: 20231212
  Receipt Date: 20231212
  Transmission Date: 20240110
  Serious: Yes (Other)
  Sender: FDA-Public Use
  Company Number: ES-MYLANLABS-2023M1117004

PATIENT
  Sex: Female

DRUGS (1)
  1. TAMOXIFEN [Suspect]
     Active Substance: TAMOXIFEN
     Indication: Breast cancer metastatic
     Dosage: 20 MILLIGRAM, QD
     Route: 065

REACTIONS (2)
  - Neoplasm progression [Unknown]
  - Back pain [Unknown]

NARRATIVE: CASE EVENT DATE: 20200828
